FAERS Safety Report 14100311 (Version 1)
Quarter: 2017Q4

REPORT INFORMATION
  Report Type: Spontaneous
  Country: JP (occurrence: JP)
  Receive Date: 20171017
  Receipt Date: 20171017
  Transmission Date: 20180321
  Serious: Yes (Other)
  Sender: FDA-Public Use
  Company Number: JP-PFIZER INC-2017439566

PATIENT

DRUGS (3)
  1. METHOTREXATE. [Suspect]
     Active Substance: METHOTREXATE
     Indication: CENTRAL NERVOUS SYSTEM LYMPHOMA
     Dosage: UNK
  2. METHOTREXATE. [Suspect]
     Active Substance: METHOTREXATE
     Dosage: 3.5 MG/M2, UNK
  3. LEUCOVORIN /00566701/ [Concomitant]
     Active Substance: LEUCOVORIN
     Indication: CENTRAL NERVOUS SYSTEM LYMPHOMA
     Dosage: UNK

REACTIONS (2)
  - Drug clearance decreased [Unknown]
  - Pleural effusion [Unknown]
